FAERS Safety Report 5333566-8 (Version None)
Quarter: 2007Q2

REPORT INFORMATION
  Report Type: 
  Country: None (occurrence: None)
  Receive Date: 20070521
  Receipt Date: 20070508
  Transmission Date: 20071010
  Serious: Yes (Other)
  Sender: FDA-Public Use
  Company Number: 07-001040

PATIENT
  Age: 26 Year
  Sex: Female
  Weight: 77.1 kg

DRUGS (2)
  1. LOESTRIN 24 FE [Suspect]
     Indication: MENORRHAGIA
     Dosage: 20/1000 UG, UG, ORAL
     Route: 048
     Dates: start: 20070323
  2. MULTI-VITAMIN [Concomitant]

REACTIONS (7)
  - AGGRESSION [None]
  - ANGER [None]
  - ANXIETY [None]
  - BIPOLAR DISORDER [None]
  - DISEASE RECURRENCE [None]
  - HOSTILITY [None]
  - LIBIDO DECREASED [None]
